FAERS Safety Report 7770198-6 (Version None)
Quarter: 2011Q3

REPORT INFORMATION
  Report Type: 
  Country: None (occurrence: None)
  Receive Date: 20110922
  Receipt Date: 20100914
  Transmission Date: 20111222
  Serious: No
  Sender: FDA-Public Use
  Company Number: US-ASTRAZENECA-2010SE34609

PATIENT
  Age: 38 Year
  Sex: Female

DRUGS (1)
  1. SEROQUEL [Suspect]
     Route: 048
     Dates: start: 20100601, end: 20100701

REACTIONS (3)
  - INFLUENZA [None]
  - WRONG TECHNIQUE IN DRUG USAGE PROCESS [None]
  - DRUG DOSE OMISSION [None]
